FAERS Safety Report 8583805-5 (Version None)
Quarter: 2012Q3

REPORT INFORMATION
  Report Type: 
  Country: None (occurrence: None)
  Receive Date: 20120810
  Receipt Date: 20120731
  Transmission Date: 20120928
  Serious: Yes (Hospitalization, Disabling, Other)
  Sender: FDA-Public Use
  Company Number: US-009507513-1201USA00751

PATIENT

DRUGS (6)
  1. CALCIUM (UNSPECIFIED) [Concomitant]
     Indication: OSTEOPOROSIS
     Dosage: 1500 MG, QD
     Dates: start: 20011113, end: 20070101
  2. FOSAMAX [Suspect]
     Indication: OSTEOPOROSIS
     Dosage: 70 MG, QW
     Route: 048
     Dates: start: 20011113, end: 20061001
  3. FOSAMAX PLUS D [Suspect]
     Indication: OSTEOPOROSIS
     Dosage: 2800 IU, QW
     Route: 048
     Dates: start: 20061109, end: 20090501
  4. FOSAMAX PLUS D [Suspect]
     Indication: OSTEOPENIA
  5. ALENDRONATE SODIUM [Suspect]
     Indication: OSTEOPOROSIS
     Dosage: 70 MG, UNK
     Route: 048
     Dates: start: 20090629, end: 20100101
  6. FOSAMAX [Suspect]
     Indication: OSTEOPENIA

REACTIONS (31)
  - OSTEOARTHRITIS [None]
  - ILEAL ULCER [None]
  - LYMPHADENOPATHY [None]
  - POOR QUALITY SLEEP [None]
  - FOOT FRACTURE [None]
  - NON-ALCOHOLIC STEATOHEPATITIS [None]
  - FEMUR FRACTURE [None]
  - DEVICE FAILURE [None]
  - HYPERCALCAEMIA [None]
  - DYSPNOEA [None]
  - JOINT DISLOCATION [None]
  - LOW TURNOVER OSTEOPATHY [None]
  - PAIN IN EXTREMITY [None]
  - ARTHRALGIA [None]
  - PARAESTHESIA [None]
  - ANAEMIA POSTOPERATIVE [None]
  - HIGH DENSITY LIPOPROTEIN DECREASED [None]
  - HYPOTHYROIDISM [None]
  - ADVERSE EVENT [None]
  - MUSCULOSKELETAL PAIN [None]
  - RASH [None]
  - DYSURIA [None]
  - TOOTH DISORDER [None]
  - EXOSTOSIS [None]
  - DYSLIPIDAEMIA [None]
  - EAR PAIN [None]
  - FATIGUE [None]
  - MENISCUS LESION [None]
  - DIABETES MELLITUS [None]
  - OEDEMA PERIPHERAL [None]
  - DRY MOUTH [None]
